FAERS Safety Report 5199743-4 (Version None)
Quarter: 2007Q1

REPORT INFORMATION
  Report Type: 
  Country: None (occurrence: None)
  Receive Date: 20070105
  Receipt Date: 20051117
  Transmission Date: 20070707
  Serious: No
  Sender: FDA-Public Use
  Company Number: US-GLAXOSMITHKLINE-A0582514A

PATIENT
  Age: 60 Year

DRUGS (1)
  1. TAGAMET HB 200 [Suspect]

REACTIONS (1)
  - DRUG INEFFECTIVE [None]
